FAERS Safety Report 14880420 (Version 1)
Quarter: 2018Q2

REPORT INFORMATION
  Report Type: Spontaneous
  Country: US (occurrence: US)
  Receive Date: 20180425
  Receipt Date: 20180425
  Transmission Date: 20180711
  Serious: Yes (Hospitalization)
  Sender: FDA-Public Use
  Company Number: None

PATIENT
  Sex: Male

DRUGS (7)
  1. OXYCODONE [Concomitant]
     Active Substance: OXYCODONE
  2. MORPHINE [Concomitant]
     Active Substance: MORPHINE
  3. LETAIRIS [Concomitant]
     Active Substance: AMBRISENTAN
  4. POTASSIUM [Concomitant]
     Active Substance: POTASSIUM
  5. FOLIC ACID. [Concomitant]
     Active Substance: FOLIC ACID
  6. LASIX [Concomitant]
     Active Substance: FUROSEMIDE
  7. JADENU [Suspect]
     Active Substance: DEFERASIROX
     Indication: PULMONARY ARTERIAL HYPERTENSION
     Dosage: 360 MG 3 TABS DAILY ORAL?
     Route: 048
     Dates: start: 20140321

REACTIONS (1)
  - Spinal operation [None]
